FAERS Safety Report 18192473 (Version 6)
Quarter: 2025Q3

REPORT INFORMATION
  Report Type: Report from Study
  Country: EU (occurrence: EU)
  Receive Date: 20200825
  Receipt Date: 20250915
  Transmission Date: 20251020
  Serious: Yes (Hospitalization)
  Sender: MYLAN
  Company Number: EU-PFIZER INC-2020294258

PATIENT
  Age: 48 Year
  Sex: Female
  Weight: 60 kg

DRUGS (12)
  1. TRAMADOL [Suspect]
     Active Substance: TRAMADOL
     Indication: Back pain
     Dosage: UNK UNK, QD,(20 (UNITS NOT PROVIDED), 2X/DAY)
  2. TRAMADOL [Suspect]
     Active Substance: TRAMADOL
     Dosage: UNK, QD (20 (UNITS NOT PROVIDED), 2X/DAY )
     Dates: start: 20191113
  3. TALZENNA [Suspect]
     Active Substance: TALAZOPARIB TOSYLATE
     Indication: Breast cancer
  4. TALZENNA [Suspect]
     Active Substance: TALAZOPARIB TOSYLATE
     Indication: Breast cancer metastatic
     Dosage: 1 MILLIGRAM, QD, (1 MG, DAILY)
     Dates: start: 20190403, end: 20190706
  5. TALZENNA [Suspect]
     Active Substance: TALAZOPARIB TOSYLATE
     Dosage: 1 MILLIGRAM, QD, (1 MG, DAILY)
     Dates: start: 20190709, end: 20190723
  6. TALZENNA [Suspect]
     Active Substance: TALAZOPARIB TOSYLATE
     Dates: start: 20190819, end: 20191104
  7. TALZENNA [Suspect]
     Active Substance: TALAZOPARIB TOSYLATE
  8. TALZENNA [Suspect]
     Active Substance: TALAZOPARIB TOSYLATE
  9. TALZENNA [Suspect]
     Active Substance: TALAZOPARIB TOSYLATE
  10. TALZENNA [Suspect]
     Active Substance: TALAZOPARIB TOSYLATE
  11. TALZENNA [Suspect]
     Active Substance: TALAZOPARIB TOSYLATE
     Dosage: 0.50 MILLIGRAM, QD
     Dates: start: 20200220
  12. PROPRANOLOL HYDROCHLORIDE [Concomitant]
     Active Substance: PROPRANOLOL HYDROCHLORIDE
     Indication: Tachycardia

REACTIONS (6)
  - Anaemia [Recovered/Resolved with Sequelae]
  - Asthenia [Not Recovered/Not Resolved]
  - Dyspnoea exertional [Not Recovered/Not Resolved]
  - Back pain [Recovered/Resolved]
  - Nausea [Recovered/Resolved]
  - Vomiting [Recovered/Resolved]

NARRATIVE: CASE EVENT DATE: 20190605
